FAERS Safety Report 9932218 (Version 1)
Quarter: 2014Q1

REPORT INFORMATION
  Report Type: Spontaneous
  Country: US (occurrence: US)
  Receive Date: 20140228
  Receipt Date: 20140228
  Transmission Date: 20141002
  Serious: No
  Sender: FDA-Public Use
  Company Number: US-ABBVIE-14P-163-1199119-00

PATIENT
  Age: 66 Year
  Sex: Male
  Weight: 93.52 kg

DRUGS (3)
  1. ANDROGEL [Suspect]
     Indication: BLOOD TESTOSTERONE DECREASED
     Dates: start: 201302, end: 20140205
  2. ANDROGEL [Suspect]
     Dosage: 2 PUMP ACTUATIONS PER DAY
     Dates: start: 20140206
  3. NORVASC [Concomitant]
     Indication: HYPERTENSION

REACTIONS (6)
  - Hypercoagulation [Not Recovered/Not Resolved]
  - Haemoglobin increased [Not Recovered/Not Resolved]
  - Blood testosterone decreased [Not Recovered/Not Resolved]
  - Blood pressure increased [Recovered/Resolved]
  - Blood cholesterol increased [Not Recovered/Not Resolved]
  - Haematocrit increased [Not Recovered/Not Resolved]
